FAERS Safety Report 19888464 (Version 1)
Quarter: 2021Q3

REPORT INFORMATION
  Report Type: Report from Study
  Country: US (occurrence: US)
  Receive Date: 20210927
  Receipt Date: 20210927
  Transmission Date: 20211014
  Serious: Yes (Other)
  Sender: FDA-Public Use
  Company Number: NVSC2021US217101

PATIENT
  Sex: Female

DRUGS (1)
  1. KESIMPTA [Suspect]
     Active Substance: OFATUMUMAB
     Indication: RELAPSING MULTIPLE SCLEROSIS
     Dosage: (BENATH THE SKIN, USUALLY VIA INJECTION)
     Route: 058
     Dates: start: 20210412

REACTIONS (1)
  - COVID-19 pneumonia [Recovering/Resolving]
